FAERS Safety Report 20679214 (Version 1)
Quarter: 2022Q2

REPORT INFORMATION
  Report Type: Spontaneous
  Country: US (occurrence: US)
  Receive Date: 20220406
  Receipt Date: 20220406
  Transmission Date: 20220720
  Serious: No
  Sender: FDA-Public Use
  Company Number: US-AMGEN-USASP2022055757

PATIENT
  Age: 54 Year
  Sex: Female

DRUGS (1)
  1. BLINCYTO [Suspect]
     Active Substance: BLINATUMOMAB
     Indication: Product used for unknown indication
     Dosage: 112 MICROGRAM VIA 4 DAY PUMP
     Route: 065
     Dates: start: 20210821

REACTIONS (1)
  - Device infusion issue [Unknown]

NARRATIVE: CASE EVENT DATE: 20220221
